FAERS Safety Report 20824479 (Version 1)
Quarter: 2022Q2

REPORT INFORMATION
  Report Type: Spontaneous
  Country: US (occurrence: US)
  Receive Date: 20220513
  Receipt Date: 20220513
  Transmission Date: 20220721
  Serious: Yes (Other)
  Sender: FDA-Public Use
  Company Number: US-GYP-001058

PATIENT
  Age: 19 Year
  Sex: Female

DRUGS (1)
  1. PREDNISONE [Suspect]
     Active Substance: PREDNISONE
     Indication: Drug eruption
     Route: 048

REACTIONS (2)
  - Squamous cell carcinoma of skin [Recovered/Resolved]
  - Product use in unapproved indication [Unknown]
